FAERS Safety Report 10199691 (Version 2)
Quarter: 2014Q2

REPORT INFORMATION
  Report Type: Spontaneous
  Country: ZA (occurrence: ZA)
  Receive Date: 20140527
  Receipt Date: 20140603
  Transmission Date: 20141212
  Serious: Yes (Other)
  Sender: FDA-Public Use
  Company Number: ZA-B.I. PHARMACEUTICALS,INC./RIDGEFIELD-2014-BI-22723ZA

PATIENT
  Age: 92 Year
  Sex: Female

DRUGS (6)
  1. PRADAXA [Suspect]
     Indication: ATRIAL FIBRILLATION
     Dosage: 150 MG
     Route: 048
     Dates: start: 201402, end: 20140518
  2. WARFARIN [Concomitant]
     Route: 065
  3. LISTORETIC [Concomitant]
     Route: 065
  4. ELTROXIN [Concomitant]
     Route: 065
  5. SPIRONOLACTONE [Concomitant]
     Route: 065
  6. ZOCOR [Concomitant]
     Route: 065

REACTIONS (1)
  - Transient ischaemic attack [Recovered/Resolved]
